FAERS Safety Report 21620593 (Version 2)
Quarter: 2022Q4

REPORT INFORMATION
  Report Type: Spontaneous
  Country: CN (occurrence: CN)
  Receive Date: 20221121
  Receipt Date: 20221129
  Transmission Date: 20230113
  Serious: Yes (Other)
  Sender: FDA-Public Use
  Company Number: CN-PUMA BIOTECHNOLOGY, INC.-2022-PUM-CN002264

PATIENT

DRUGS (7)
  1. NERLYNX [Suspect]
     Active Substance: NERATINIB
     Indication: Bile duct adenocarcinoma
     Dosage: 6 TABLETS (240 MG), DAILY
     Route: 048
     Dates: start: 202209, end: 202209
  2. NERLYNX [Suspect]
     Active Substance: NERATINIB
     Dosage: 3 TABLETS (120 MG), DAILY
     Route: 048
     Dates: start: 2022, end: 2022
  3. NERLYNX [Suspect]
     Active Substance: NERATINIB
     Dosage: 4 TABLETS (160 MG), DAILY
     Route: 048
     Dates: start: 2022, end: 2022
  4. NERLYNX [Suspect]
     Active Substance: NERATINIB
     Dosage: 5 TABLETS (200 MG), DAILY
     Route: 048
     Dates: start: 2022, end: 2022
  5. NERLYNX [Suspect]
     Active Substance: NERATINIB
     Dosage: 6 TABLETS (240 MG), DAILY
     Route: 048
     Dates: start: 20221016, end: 20221117
  6. LAPATINIB [Concomitant]
     Active Substance: LAPATINIB
     Indication: Product used for unknown indication
  7. CAPECITABINE [Concomitant]
     Active Substance: CAPECITABINE
     Indication: Product used for unknown indication
     Dosage: 3 DF, DAILY
     Dates: start: 202209, end: 202210

REACTIONS (8)
  - Balance disorder [Not Recovered/Not Resolved]
  - Dysstasia [Not Recovered/Not Resolved]
  - Gait inability [Unknown]
  - Dizziness [Unknown]
  - Asthenia [Unknown]
  - Nausea [Unknown]
  - Vomiting [Unknown]
  - Off label use [Unknown]

NARRATIVE: CASE EVENT DATE: 20220901
